FAERS Safety Report 5367755-3 (Version None)
Quarter: 2007Q2

REPORT INFORMATION
  Report Type: 
  Country: None (occurrence: None)
  Receive Date: 20070622
  Receipt Date: 20070308
  Transmission Date: 20071010
  Serious: No
  Sender: FDA-Public Use
  Company Number: US-ASTRAZENECA-2007UW04565

PATIENT
  Age: 7 Year
  Sex: Male
  Weight: 24 kg

DRUGS (3)
  1. PULMICORT RESPULES [Suspect]
     Indication: BRONCHIAL HYPERREACTIVITY
     Route: 055
  2. XOPENEX [Concomitant]
  3. FORADIL [Concomitant]

REACTIONS (2)
  - OVERDOSE [None]
  - SKIN DISORDER [None]
